FAERS Safety Report 9841179 (Version 2)
Quarter: 2014Q2

REPORT INFORMATION
  Report Type: Spontaneous
  Country: US (occurrence: US)
  Receive Date: 20140124
  Receipt Date: 20140416
  Transmission Date: 20141212
  Serious: No
  Sender: FDA-Public Use
  Company Number: US-009507513-1401USA010705

PATIENT
  Age: 84 Year
  Sex: Female
  Weight: 90.25 kg

DRUGS (26)
  1. OXYTROL FOR WOMEN [Suspect]
     Indication: INCONTINENCE
     Dosage: 1 DF, Q4D
     Route: 062
     Dates: start: 20140109, end: 20140206
  2. AMARYL [Concomitant]
     Indication: DIABETES MELLITUS
     Dosage: 4 MG, BID
  3. PRILOSEC [Concomitant]
     Indication: GASTROOESOPHAGEAL REFLUX DISEASE
     Dosage: 20 MG, QD
  4. SYNTHROID [Concomitant]
     Indication: THYROID DISORDER
     Dosage: 200 MG, QD
  5. LANOXIN [Concomitant]
     Indication: CARDIAC FAILURE CONGESTIVE
     Dosage: 0.25 MG, QD
  6. LASIX (FUROSEMIDE SODIUM) [Concomitant]
     Indication: DIURETIC THERAPY
     Dosage: 40 MG, QD
  7. ALDACTONE (SPIRONOLACTONE) [Concomitant]
     Indication: DIURETIC THERAPY
     Dosage: 25 MG, QD
  8. ZOLOFT [Concomitant]
     Indication: DEPRESSION
     Dosage: 50 MG, QD
  9. MAGNESIUM (UNSPECIFIED) [Concomitant]
     Indication: PRODUCT USED FOR UNKNOWN INDICATION
     Dosage: 250 MG, QD
  10. POTASSIUM GLUCONATE [Concomitant]
     Indication: PRODUCT USED FOR UNKNOWN INDICATION
     Dosage: 595 MG, QD
  11. OMEGA-3 MARINE TRIGLYCERIDES [Concomitant]
     Indication: PRODUCT USED FOR UNKNOWN INDICATION
     Dosage: 2 G, BID
  12. ASCORBIC ACID (+) VITAMIN B COMPLEX [Concomitant]
     Indication: PRODUCT USED FOR UNKNOWN INDICATION
     Dosage: UNK, QD
  13. COUMADIN [Concomitant]
     Indication: ANTICOAGULANT THERAPY
     Dosage: UNK, QD
  14. ADVAIR [Concomitant]
     Indication: ASTHMA
     Dosage: 1 DF, BID
  15. TENORMIN [Concomitant]
     Indication: BLOOD PRESSURE
     Dosage: 50 MG, BID
  16. ZOCOR [Concomitant]
     Indication: BLOOD CHOLESTEROL
     Dosage: 20 MG, QPM
  17. ATIVAN [Concomitant]
     Indication: ANXIETY
     Dosage: 1 MG, QPM
  18. DESYREL [Concomitant]
     Indication: INSOMNIA
     Dosage: 100 MG, QPM
  19. COZAAR [Concomitant]
     Indication: PRODUCT USED FOR UNKNOWN INDICATION
     Dosage: 25 MG, QPM
  20. ANTIVERT (MECLIZINE HYDROCHLORIDE) [Concomitant]
     Indication: VERTIGO
     Dosage: 25 MG, QPM
  21. CALCIUM (UNSPECIFIED) (+) VITAMIN D (UNSPECIFIED) [Concomitant]
     Indication: PRODUCT USED FOR UNKNOWN INDICATION
     Dosage: 1 DF, QPM
  22. LANTUS [Concomitant]
     Indication: DIABETES MELLITUS
     Dosage: 45 IU, QPM
  23. SPIRIVA [Concomitant]
     Indication: ASTHMA
     Dosage: 1 DF, QPM
  24. FLUTICASONE PROPIONATE [Concomitant]
     Indication: ASTHMA
     Dosage: 1 DF, QD
  25. AMMONIUM LACTATE [Concomitant]
     Indication: PRODUCT USED FOR UNKNOWN INDICATION
     Dosage: UNK, PRN
  26. COLACE [Concomitant]
     Indication: CONSTIPATION
     Dosage: 100 MG, PRN

REACTIONS (2)
  - Diarrhoea [Unknown]
  - Drug effect decreased [Unknown]
